FAERS Safety Report 5927866-8 (Version None)
Quarter: 2008Q4

REPORT INFORMATION
  Report Type: 
  Country: None (occurrence: None)
  Receive Date: 20081023
  Receipt Date: 20081020
  Transmission Date: 20090506
  Serious: Yes (Death)
  Sender: FDA-Public Use
  Company Number: JP-BRISTOL-MYERS SQUIBB COMPANY-14379036

PATIENT

DRUGS (3)
  1. VEPESID [Suspect]
     Route: 041
  2. ENDOXAN [Suspect]
     Route: 041
  3. RADIATION THERAPY [Suspect]

REACTIONS (1)
  - DEATH [None]
